FAERS Safety Report 6918231-5 (Version None)
Quarter: 2010Q3

REPORT INFORMATION
  Report Type: 
  Country: None (occurrence: None)
  Receive Date: 20100811
  Receipt Date: 20100809
  Transmission Date: 20110219
  Serious: Yes (Other)
  Sender: FDA-Public Use
  Company Number: US-ASTRAZENECA-2008UW08803

PATIENT
  Age: 15436 Day
  Sex: Female
  Weight: 83.9 kg

DRUGS (6)
  1. SEROQUEL [Suspect]
     Indication: BIPOLAR DISORDER
     Dosage: 25-300 MG
     Route: 048
     Dates: start: 20021216, end: 20080123
  2. SEROQUEL [Suspect]
     Indication: DEPRESSION
     Dosage: 25-300 MG
     Route: 048
     Dates: start: 20021216, end: 20080123
  3. SEROQUEL [Suspect]
     Route: 048
     Dates: start: 20041006
  4. SEROQUEL [Suspect]
     Route: 048
     Dates: start: 20041006
  5. RISPERDAL [Suspect]
  6. ZYPREXA [Suspect]

REACTIONS (7)
  - ADVERSE DRUG REACTION [None]
  - APPENDIX DISORDER [None]
  - DIABETES MELLITUS [None]
  - DIABETIC COMPLICATION [None]
  - LIVER DISORDER [None]
  - NECK INJURY [None]
  - TYPE 2 DIABETES MELLITUS [None]
